FAERS Safety Report 24693110 (Version 2)
Quarter: 2024Q4

REPORT INFORMATION
  Report Type: Spontaneous
  Country: CL (occurrence: CL)
  Receive Date: 20241203
  Receipt Date: 20241212
  Transmission Date: 20250115
  Serious: Yes (Hospitalization)
  Sender: ELI LILLY AND COMPANY
  Company Number: CL-Merck Healthcare KGaA-2024061972

PATIENT
  Age: 65 Year

DRUGS (1)
  1. ERBITUX [Suspect]
     Active Substance: CETUXIMAB
     Indication: Colon cancer metastatic
     Dosage: 563 MG, UNKNOWN
     Route: 041
     Dates: start: 20241009

REACTIONS (2)
  - Subarachnoid haemorrhage [Unknown]
  - Hypertensive crisis [Recovering/Resolving]
